FAERS Safety Report 7236132-2 (Version None)
Quarter: 2011Q1

REPORT INFORMATION
  Report Type: 
  Country: None (occurrence: None)
  Receive Date: 20110120
  Receipt Date: 20110111
  Transmission Date: 20110831
  Serious: Yes (Life-Threatening, Hospitalization)
  Sender: FDA-Public Use
  Company Number: US-JNJFOC-20110102897

PATIENT
  Sex: Female
  Weight: 59.42 kg

DRUGS (12)
  1. INFLIXIMAB, RECOMBINANT [Suspect]
     Route: 042
  2. INFLIXIMAB, RECOMBINANT [Suspect]
     Route: 042
  3. STEROIDS NOS [Concomitant]
     Indication: PREMEDICATION
  4. INFLIXIMAB, RECOMBINANT [Suspect]
     Route: 042
  5. INFLIXIMAB, RECOMBINANT [Suspect]
     Indication: CROHN'S DISEASE
     Route: 042
  6. INFLIXIMAB, RECOMBINANT [Suspect]
     Route: 042
  7. CIMZIA [Concomitant]
  8. INFLIXIMAB, RECOMBINANT [Suspect]
     Route: 042
  9. INFLIXIMAB, RECOMBINANT [Suspect]
     Route: 042
  10. ANTIHISTAMINES [Concomitant]
     Indication: PREMEDICATION
  11. INFLIXIMAB, RECOMBINANT [Suspect]
     Route: 042
  12. INFLIXIMAB, RECOMBINANT [Suspect]
     Route: 042

REACTIONS (2)
  - MENINGIOMA [None]
  - CONVULSION [None]
